FAERS Safety Report 6822432-4 (Version None)
Quarter: 2010Q3

REPORT INFORMATION
  Report Type: 
  Country: None (occurrence: None)
  Receive Date: 20100706
  Receipt Date: 20100629
  Transmission Date: 20110219
  Serious: Yes (Other)
  Sender: FDA-Public Use
  Company Number: A0867582A

PATIENT
  Age: 50 Year
  Sex: Female

DRUGS (1)
  1. ALUMINUM HYDROXIDE + MAGNESIUM ALGINATE L (ALHYD + MAGCARB+SODALG) [Suspect]
     Indication: PRODUCT USED FOR UNKNOWN INDICATION

REACTIONS (4)
  - DISTURBANCE IN ATTENTION [None]
  - LIVER FUNCTION TEST ABNORMAL [None]
  - SLUGGISHNESS [None]
  - SOMNOLENCE [None]
